FAERS Safety Report 12736288 (Version 1)
Quarter: 2016Q3

REPORT INFORMATION
  Report Type: Report from Study
  Country: US (occurrence: US)
  Receive Date: 20160913
  Receipt Date: 20160913
  Transmission Date: 20161109
  Serious: No
  Sender: FDA-Public Use
  Company Number: PHEH2016US022884

PATIENT
  Sex: Male
  Weight: 99.7 kg

DRUGS (1)
  1. ENTRESTO [Suspect]
     Active Substance: SACUBITRIL\VALSARTAN
     Indication: HEART RATE IRREGULAR
     Dosage: UNK UNK, BID
     Route: 048

REACTIONS (4)
  - Post procedural infection [Unknown]
  - Fluid retention [Unknown]
  - Blood pressure decreased [Unknown]
  - Product use issue [Unknown]
